FAERS Safety Report 14696989 (Version 1)
Quarter: 2018Q1

REPORT INFORMATION
  Report Type: Spontaneous
  Country: US (occurrence: US)
  Receive Date: 20180330
  Receipt Date: 20180330
  Transmission Date: 20180509
  Serious: No
  Sender: FDA-Public Use
  Company Number: US-SA-2017SA095531

PATIENT
  Age: 66 Year
  Sex: Male

DRUGS (1)
  1. ALLEGRA ALLERGY [Suspect]
     Active Substance: FEXOFENADINE HYDROCHLORIDE
     Indication: HYPERSENSITIVITY
     Dosage: A WEEK AGO
     Route: 065

REACTIONS (4)
  - Hypersensitivity [Unknown]
  - Gingival swelling [Unknown]
  - Gingival erythema [Unknown]
  - Gingival pain [Unknown]
